FAERS Safety Report 21658544 (Version 1)
Quarter: 2022Q4

REPORT INFORMATION
  Report Type: Report from Study
  Country: US (occurrence: US)
  Receive Date: 20221129
  Receipt Date: 20221129
  Transmission Date: 20230113
  Serious: No
  Sender: FDA-Public Use
  Company Number: US-ABBVIE-4166690

PATIENT
  Sex: Male

DRUGS (1)
  1. HUMIRA [Suspect]
     Active Substance: ADALIMUMAB
     Indication: Crohn^s disease
     Route: 058

REACTIONS (6)
  - Mean cell haemoglobin decreased [Unknown]
  - Vitamin D decreased [Unknown]
  - Mean cell volume decreased [Unknown]
  - Platelet disorder [Unknown]
  - White blood cell count increased [Unknown]
  - Low density lipoprotein [Unknown]
